FAERS Safety Report 9875066 (Version 1)
Quarter: 2014Q1

REPORT INFORMATION
  Report Type: Spontaneous
  Country: IT (occurrence: IT)
  Receive Date: 20140206
  Receipt Date: 20140206
  Transmission Date: 20141002
  Serious: Yes (Other)
  Sender: FDA-Public Use
  Company Number: PHHY2014IT012700

PATIENT
  Age: 33 Year
  Sex: Male

DRUGS (2)
  1. TRIAMCINOLONE [Suspect]
     Indication: TENOSYNOVITIS
     Dosage: 40 MG, UNK
     Route: 030
  2. TRIAMCINOLONE [Suspect]
     Dosage: 2400 MG, UNK
     Route: 030

REACTIONS (22)
  - Irritability [Recovering/Resolving]
  - Euphoric mood [Recovering/Resolving]
  - Insomnia [Recovering/Resolving]
  - Disturbance in attention [Recovering/Resolving]
  - Erythema [Recovering/Resolving]
  - Abdominal distension [Recovering/Resolving]
  - Cushingoid [Recovering/Resolving]
  - Central obesity [Recovering/Resolving]
  - Skin striae [Recovering/Resolving]
  - Hypothalamic pituitary adrenal axis suppression [Recovering/Resolving]
  - Adrenal insufficiency [Recovering/Resolving]
  - Tuberculosis [Recovering/Resolving]
  - Overdose [Unknown]
  - Pain in extremity [Recovering/Resolving]
  - Injection site abscess sterile [Recovering/Resolving]
  - Secondary hypogonadism [Recovering/Resolving]
  - Cushing^s syndrome [Recovering/Resolving]
  - Muscle spasms [Recovering/Resolving]
  - Muscular weakness [Recovering/Resolving]
  - Muscle atrophy [Recovering/Resolving]
  - Contusion [Recovering/Resolving]
  - Mood altered [Recovering/Resolving]
